FAERS Safety Report 5898392-X (Version None)
Quarter: 2008Q3

REPORT INFORMATION
  Report Type: 
  Country: None (occurrence: None)
  Receive Date: 20080925
  Receipt Date: 20071016
  Transmission Date: 20090109
  Serious: No
  Sender: FDA-Public Use
  Company Number: A0687987A

PATIENT
  Age: 70 Year
  Sex: Female

DRUGS (8)
  1. WELLBUTRIN XL [Suspect]
     Indication: DEPRESSION
     Dosage: 150MG PER DAY
     Route: 048
     Dates: end: 20061101
  2. LEVOXYL [Concomitant]
  3. VITAMIN E [Concomitant]
  4. MAXZIDE [Concomitant]
  5. VITAMIN D [Concomitant]
  6. COZAAR [Concomitant]
  7. ALLEGRA [Concomitant]
  8. CENESTIN [Concomitant]

REACTIONS (1)
  - DRUG INEFFECTIVE [None]
